FAERS Safety Report 8763801 (Version 1)
Quarter: 2012Q4

REPORT INFORMATION
  Report Type: 
  Country: DE (occurrence: DE)
  Receive Date: 20120831
  Receipt Date: 20120831
  Transmission Date: 20130627
  Serious: Yes (Hospitalization)
  Sender: FDA-Public Use
  Company Number: DE-PFIZER INC-2012210127

PATIENT
  Age: 37 Year
  Sex: Female
  Weight: 63.4 kg

DRUGS (10)
  1. GENOTROPIN [Suspect]
     Indication: HYPOPITUITARISM
     Dosage: 0.6 mg, 7 injection week
     Route: 058
     Dates: start: 20010515
  2. CYCLO-PROGYNOVA [Concomitant]
     Indication: BLOOD LUTEINISING HORMONE DECREASED
     Dosage: UNK
     Dates: start: 19900515
  3. CYCLO-PROGYNOVA [Concomitant]
     Indication: BLOOD FOLLICLE STIMULATING HORMONE DECREASED
  4. CYCLO-PROGYNOVA [Concomitant]
     Indication: HYPOGONADISM FEMALE
  5. HYDROCORTISON [Concomitant]
     Indication: BLOOD CORTICOTROPHIN DECREASED
     Dosage: UNK
     Dates: start: 19920215
  6. FLUDROCORTISONE ACETATE [Concomitant]
     Dosage: UNK
     Dates: start: 20061123
  7. L-THYROXIN ^HENNING BERLIN^ [Concomitant]
     Dosage: UNK
     Dates: start: 20061123
  8. OXCARBAZEPINE [Concomitant]
     Indication: EPILEPSY
     Dosage: UNK
     Dates: start: 20061123
  9. OXCARBAZEPINE [Concomitant]
     Indication: CONVULSION
  10. OXCARBAZEPINE [Concomitant]
     Indication: CONVULSION

REACTIONS (1)
  - Nasal disorder [Unknown]
